FAERS Safety Report 16083632 (Version 1)
Quarter: 2019Q1

REPORT INFORMATION
  Report Type: Spontaneous
  Country: US (occurrence: US)
  Receive Date: 20190318
  Receipt Date: 20190318
  Transmission Date: 20190418
  Serious: Yes (Hospitalization)
  Sender: FDA-Public Use
  Company Number: US-ROCHE-2278952

PATIENT
  Age: 12 Year
  Sex: Female

DRUGS (26)
  1. RETINOL PALMITATE [Concomitant]
     Active Substance: VITAMIN A PALMITATE
  2. THIAMINE HYDROCHLORIDE. [Concomitant]
     Active Substance: THIAMINE HYDROCHLORIDE
  3. TOCOPHERYL ACETATE [Concomitant]
     Active Substance: .ALPHA.-TOCOPHEROL ACETATE
  4. VITAMIN K [Concomitant]
     Active Substance: PHYTONADIONE
  5. PYRIDOXINE HYDROCHLORIDE. [Concomitant]
     Active Substance: PYRIDOXINE HYDROCHLORIDE
  6. ZINC GLUCONATE [Concomitant]
     Active Substance: ZINC GLUCONATE
  7. CREON [Concomitant]
     Active Substance: PANCRELIPASE AMYLASE\PANCRELIPASE LIPASE\PANCRELIPASE PROTEASE
  8. DEXPANTHENOL. [Concomitant]
     Active Substance: DEXPANTHENOL
  9. PHYTOMENADIONE [Concomitant]
     Active Substance: PHYTONADIONE
     Route: 065
  10. PULMOZYME [Suspect]
     Active Substance: DORNASE ALFA
     Indication: CYSTIC FIBROSIS
     Route: 055
     Dates: start: 20140625
  11. ETHAMBUTOL [Concomitant]
     Active Substance: ETHAMBUTOL HYDROCHLORIDE
  12. URSODIOL. [Concomitant]
     Active Substance: URSODIOL
  13. CAYSTON [Suspect]
     Active Substance: AZTREONAM
     Indication: CYSTIC FIBROSIS
     Dosage: 11 MONTHS
     Route: 055
     Dates: start: 20180315, end: 20190215
  14. AZITHROMYCIN ANHYDROUS. [Concomitant]
     Active Substance: AZITHROMYCIN ANHYDROUS
  15. RANITIDINE. [Concomitant]
     Active Substance: RANITIDINE
  16. COLECALCIFEROL [Concomitant]
     Active Substance: CHOLECALCIFEROL
  17. CYANOCOBALAMIN. [Concomitant]
     Active Substance: CYANOCOBALAMIN
  18. TOCOPHERYL ACETATE [Concomitant]
     Active Substance: .ALPHA.-TOCOPHEROL ACETATE
  19. VITAMIN A [Concomitant]
     Active Substance: VITAMIN A
  20. FLOVENT [Concomitant]
     Active Substance: FLUTICASONE PROPIONATE
  21. BIOTIN [Concomitant]
     Active Substance: BIOTIN
  22. NICOTINAMIDE [Concomitant]
     Active Substance: NIACINAMIDE
  23. SALBUTAMOL [Concomitant]
     Active Substance: ALBUTEROL
  24. BACTRIM [Concomitant]
     Active Substance: SULFAMETHOXAZOLE\TRIMETHOPRIM
  25. BETACAROTENE [Concomitant]
     Active Substance: .BETA.-CAROTENE
  26. SODIUM ASCORBATE [Concomitant]
     Active Substance: SODIUM ASCORBATE

REACTIONS (1)
  - Cystic fibrosis respiratory infection suppression [Not Recovered/Not Resolved]

NARRATIVE: CASE EVENT DATE: 20190215
